FAERS Safety Report 10063620 (Version 1)
Quarter: 2014Q2

REPORT INFORMATION
  Report Type: Spontaneous
  Country: JP (occurrence: JP)
  Receive Date: 20140407
  Receipt Date: 20140407
  Transmission Date: 20141212
  Serious: Yes (Hospitalization)
  Sender: FDA-Public Use
  Company Number: JP-KOWA-2014S1000390

PATIENT
  Age: 76 Year
  Sex: Male

DRUGS (5)
  1. LIVALO [Suspect]
     Indication: TYPE 2 DIABETES MELLITUS
     Route: 048
     Dates: start: 20101222, end: 20110802
  2. NESINA [Suspect]
     Indication: TYPE 2 DIABETES MELLITUS
     Route: 048
     Dates: start: 20100921
  3. ACTOS [Suspect]
     Indication: TYPE 2 DIABETES MELLITUS
     Route: 048
     Dates: start: 20101222, end: 20110105
  4. BLOPRESS [Concomitant]
     Route: 048
     Dates: start: 20101005, end: 20110413
  5. SEIBULE [Concomitant]
     Route: 048
     Dates: start: 20110623

REACTIONS (5)
  - Pulmonary tuberculosis [Unknown]
  - Hepatic function abnormal [Recovered/Resolved]
  - Face oedema [Recovered/Resolved]
  - Bronchitis [Recovered/Resolved]
  - Bronchitis chronic [Recovering/Resolving]
